FAERS Safety Report 21324192 (Version 1)
Quarter: 2022Q3

REPORT INFORMATION
  Report Type: Spontaneous
  Country: US (occurrence: None)
  Receive Date: 20220912
  Receipt Date: 20220912
  Transmission Date: 20221027
  Serious: No
  Sender: FDA-Public Use
  Company Number: None

PATIENT
  Sex: Female

DRUGS (1)
  1. HUMIRA [Suspect]
     Active Substance: ADALIMUMAB
     Indication: Crohn^s disease
     Dosage: OTHER FREQUENCY : Q 2WKS;?
     Route: 058

REACTIONS (5)
  - Cardiac failure [None]
  - Oedema peripheral [None]
  - Fatigue [None]
  - Dyspnoea [None]
  - COVID-19 [None]
